FAERS Safety Report 13431139 (Version 3)
Quarter: 2017Q2

REPORT INFORMATION
  Report Type: Report from Study
  Country: BE (occurrence: BE)
  Receive Date: 20170412
  Receipt Date: 20170522
  Transmission Date: 20170830
  Serious: Yes (Death)
  Sender: FDA-Public Use
  Company Number: PHHY2017BE055017

PATIENT
  Age: 59 Year
  Sex: Female

DRUGS (2)
  1. ACLASTA [Suspect]
     Active Substance: ZOLEDRONIC ACID
     Indication: OSTEOPOROSIS
     Dosage: Q12MO
     Route: 042
     Dates: start: 20150120
  2. ACLASTA [Suspect]
     Active Substance: ZOLEDRONIC ACID
     Dosage: Q12MO
     Route: 042
     Dates: start: 20160325, end: 20160325

REACTIONS (1)
  - Gastric haemorrhage [Fatal]

NARRATIVE: CASE EVENT DATE: 201703
